FAERS Safety Report 6185665-9 (Version None)
Quarter: 2009Q2

REPORT INFORMATION
  Report Type: 
  Country: None (occurrence: None)
  Receive Date: 20090511
  Receipt Date: 20090429
  Transmission Date: 20091009
  Serious: Yes (Hospitalization)
  Sender: FDA-Public Use
  Company Number: PHHO2009US05372

PATIENT
  Sex: Male
  Weight: 72.5 kg

DRUGS (5)
  1. RAD 666 RAD+TAB+PTR [Suspect]
     Indication: RENAL TRANSPLANT
     Dosage: UNK
     Route: 048
     Dates: end: 20090226
  2. NEORAL [Suspect]
     Dosage: UNK
     Route: 048
     Dates: start: 20090305
  3. NEORAL [Suspect]
     Dosage: 75 MG, BID
     Route: 048
     Dates: start: 20090425
  4. LASIX [Concomitant]
  5. PREDNISONE [Concomitant]

REACTIONS (8)
  - BLOOD CREATININE INCREASED [None]
  - FLUID OVERLOAD [None]
  - HYPERTENSION [None]
  - MACULAR OEDEMA [None]
  - OEDEMA PERIPHERAL [None]
  - PROTEINURIA [None]
  - TRANSPLANT REJECTION [None]
  - VITREOUS HAEMORRHAGE [None]
